FAERS Safety Report 20428692 (Version 1)
Quarter: 2022Q1

REPORT INFORMATION
  Report Type: Other
  Country: CN (occurrence: None)
  Receive Date: 20220204
  Receipt Date: 20220204
  Transmission Date: 20220423
  Serious: Yes (Other)
  Sender: FDA-Public Use
  Company Number: CN-ROCHE-3011927

PATIENT

DRUGS (3)
  1. BEVACIZUMAB [Suspect]
     Active Substance: BEVACIZUMAB
     Indication: Colorectal cancer
     Dosage: THE FIRST DRIP FOR 90 MIN, THE SECOND FOR 60 MIN, THE NEXT FOR 30 MIN
     Route: 041
  2. IRINOTECAN HYDROCHLORIDE [Suspect]
     Active Substance: IRINOTECAN HYDROCHLORIDE
     Indication: Colorectal cancer
     Dosage: 40 DROPS/ MIN
     Route: 041
  3. RALTITREXED [Suspect]
     Active Substance: RALTITREXED
     Indication: Colorectal cancer
     Dosage: INTRAVENOUS DRIP FOR 15MIN
     Route: 041

REACTIONS (24)
  - White blood cell count decreased [Unknown]
  - Neutrophil count decreased [Unknown]
  - Alanine aminotransferase increased [Unknown]
  - Gamma-glutamyltransferase increased [Unknown]
  - Diarrhoea [Recovering/Resolving]
  - Haemoglobin decreased [Unknown]
  - Platelet count decreased [Unknown]
  - Blood albumin decreased [Unknown]
  - Aspartate aminotransferase increased [Unknown]
  - Blood alkaline phosphatase increased [Unknown]
  - Constipation [Unknown]
  - Vomiting [Unknown]
  - Stomatitis [Unknown]
  - Neurotoxicity [Unknown]
  - Asthenia [Unknown]
  - Dyspnoea [Unknown]
  - Palmar-plantar erythrodysaesthesia syndrome [Unknown]
  - Alopecia [Unknown]
  - Rash [Unknown]
  - Pyrexia [Unknown]
  - Haemorrhage [Unknown]
  - Protein urine present [Unknown]
  - Hypertension [Unknown]
  - Nausea [Unknown]
